FAERS Safety Report 4390797-1 (Version None)
Quarter: 2004Q3

REPORT INFORMATION
  Report Type: 
  Country: None (occurrence: None)
  Receive Date: 20040707
  Receipt Date: 20040210
  Transmission Date: 20050211
  Serious: No
  Sender: FDA-Public Use
  Company Number: US-BRISTOL-MYERS SQUIBB COMPANY-12502506

PATIENT
  Age: 48 Year
  Sex: Male
  Weight: 91 kg

DRUGS (2)
  1. PROLIXIN DECANOATE [Suspect]
     Indication: SCHIZOPHRENIA
     Route: 030
  2. PROLIXIN DECANOATE [Suspect]
     Indication: PSYCHOTIC DISORDER
     Route: 030

REACTIONS (4)
  - ARTHRALGIA [None]
  - INJECTION SITE REACTION [None]
  - JOINT RANGE OF MOTION DECREASED [None]
  - NEOPLASM [None]
